FAERS Safety Report 9384307 (Version 2)
Quarter: 2013Q3

REPORT INFORMATION
  Report Type: Report from Study
  Country: FR (occurrence: FR)
  Receive Date: 20130705
  Receipt Date: 20130718
  Transmission Date: 20140515
  Serious: Yes (Hospitalization, Other)
  Sender: FDA-Public Use
  Company Number: PHHY2013FR067461

PATIENT
  Age: 80 Year
  Sex: Male

DRUGS (3)
  1. ICL670A [Suspect]
     Indication: MYELODYSPLASTIC SYNDROME
     Dosage: UNK UKN, UNK
     Route: 048
     Dates: start: 200610
  2. SYMBICORT [Concomitant]
     Indication: CHRONIC OBSTRUCTIVE PULMONARY DISEASE
     Dosage: UNK UKN, UNK
  3. NSAID^S [Concomitant]
     Dosage: UNK UKN, UNK

REACTIONS (3)
  - Angiodysplasia [Recovered/Resolved]
  - Melaena [Recovered/Resolved]
  - Haemoglobin decreased [Unknown]
